FAERS Safety Report 14541954 (Version 1)
Quarter: 2018Q1

REPORT INFORMATION
  Report Type: Spontaneous
  Country: US (occurrence: US)
  Receive Date: 20180216
  Receipt Date: 20180216
  Transmission Date: 20180509
  Serious: Yes (Other)
  Sender: FDA-Public Use
  Company Number: US-OTSUKA-DJ20122935

PATIENT

DRUGS (4)
  1. LYRICA [Suspect]
     Active Substance: PREGABALIN
     Indication: MIGRAINE
     Route: 065
     Dates: start: 2005
  2. ABILIFY [Suspect]
     Active Substance: ARIPIPRAZOLE
     Indication: PSYCHOTIC DISORDER
     Route: 065
     Dates: start: 2009, end: 2012
  3. ABILIFY [Suspect]
     Active Substance: ARIPIPRAZOLE
     Indication: BIPOLAR DISORDER
  4. LYRICA [Suspect]
     Active Substance: PREGABALIN
     Indication: FIBROMYALGIA

REACTIONS (26)
  - Pain [Unknown]
  - Mood altered [Unknown]
  - Muscle spasms [Unknown]
  - Dry mouth [Unknown]
  - Suicidal ideation [Unknown]
  - Tremor [Unknown]
  - Limb discomfort [Unknown]
  - Back pain [Unknown]
  - Balance disorder [Unknown]
  - Drug interaction [Unknown]
  - Oedema [Unknown]
  - Inappropriate affect [Unknown]
  - Dizziness [Unknown]
  - Anxiety [Unknown]
  - Palpitations [Unknown]
  - Feeling abnormal [Unknown]
  - Disturbance in attention [Unknown]
  - Dysgraphia [Unknown]
  - Confusional state [Unknown]
  - Weight increased [Unknown]
  - Arthralgia [Unknown]
  - Vertigo [Unknown]
  - Memory impairment [Unknown]
  - Headache [Unknown]
  - Depression [Unknown]
  - Stress [Unknown]
